FAERS Safety Report 15921628 (Version 3)
Quarter: 2019Q3

REPORT INFORMATION
  Report Type: Spontaneous
  Country: JP (occurrence: JP)
  Receive Date: 20190205
  Receipt Date: 20190705
  Transmission Date: 20191004
  Serious: Yes (Other)
  Sender: FDA-Public Use
  Company Number: PHJP2019JP001335

PATIENT
  Age: 71 Year
  Sex: Male
  Weight: 60.9 kg

DRUGS (2)
  1. LEUPRORELIN ACETATE [Concomitant]
     Active Substance: LEUPROLIDE ACETATE
     Indication: PRODUCT USED FOR UNKNOWN INDICATION
     Dosage: 11.25 MG, Q3MO
     Route: 058
     Dates: start: 201301
  2. ZOLEDRONATE [Suspect]
     Active Substance: ZOLEDRONIC ACID
     Indication: METASTASES TO BONE
     Dosage: 4 MG, 4W (24 TIMES IN TOTAL)
     Route: 041
     Dates: start: 201501

REACTIONS (11)
  - Fistula [Recovered/Resolved]
  - Jaw disorder [Unknown]
  - Periodontitis [Unknown]
  - Fistula discharge [Recovered/Resolved]
  - Osteonecrosis of jaw [Unknown]
  - Gingival swelling [Recovered/Resolved]
  - Pain [Recovered/Resolved]
  - Bone sequestrum [Unknown]
  - Osteomyelitis [Recovering/Resolving]
  - Exposed bone in jaw [Recovered/Resolved]
  - Osteosclerosis [Unknown]

NARRATIVE: CASE EVENT DATE: 201611
